FAERS Safety Report 4643503-7 (Version None)
Quarter: 2005Q2

REPORT INFORMATION
  Report Type: 
  Country: None (occurrence: None)
  Receive Date: 20050323
  Receipt Date: 20050121
  Transmission Date: 20051028
  Serious: Yes (Hospitalization)
  Sender: FDA-Public Use
  Company Number: K200500160

PATIENT
  Age: 84 Year
  Sex: Male

DRUGS (10)
  1. ALTACE [Suspect]
     Indication: CARDIAC FAILURE CONGESTIVE
     Dosage: 5 MG, QD, ORAL;  10 MG, QD, ORAL;  2.5 MG, QD, ORAL
     Route: 048
     Dates: end: 20041101
  2. ALTACE [Suspect]
     Indication: CARDIAC FAILURE CONGESTIVE
     Dosage: 5 MG, QD, ORAL;  10 MG, QD, ORAL;  2.5 MG, QD, ORAL
     Route: 048
     Dates: start: 20050105, end: 20050101
  3. ALTACE [Suspect]
     Indication: CARDIAC FAILURE CONGESTIVE
     Dosage: 5 MG, QD, ORAL;  10 MG, QD, ORAL;  2.5 MG, QD, ORAL
     Route: 048
     Dates: start: 20041101, end: 20050104
  4. ASPIRIN [Concomitant]
  5. MULTIVITAMINS W/MINERALS (MINERALS NOS, VITAMINS NOS) [Concomitant]
  6. LASIX [Concomitant]
  7. TOPROL (METOPROLOL SUCCINATE) [Concomitant]
  8. HUMULIN R [Concomitant]
  9. HUMULIN 70/30 (INSULIN HUMAN ZINC SUSPENSION, INSULIN HUMAN INJECTION, [Concomitant]
  10. APAP (PARACETAMOL) TABLET [Concomitant]

REACTIONS (6)
  - ALANINE AMINOTRANSFERASE INCREASED [None]
  - ANOREXIA [None]
  - BLOOD ALKALINE PHOSPHATASE INCREASED [None]
  - BLOOD BILIRUBIN INCREASED [None]
  - HEPATIC FAILURE [None]
  - JAUNDICE CHOLESTATIC [None]
